FAERS Safety Report 4908420-3 (Version None)
Quarter: 2006Q1

REPORT INFORMATION
  Report Type: 
  Country: None (occurrence: None)
  Receive Date: 20060210
  Receipt Date: 20060203
  Transmission Date: 20060701
  Serious: Yes (Hospitalization)
  Sender: FDA-Public Use
  Company Number: JP-BRISTOL-MYERS SQUIBB COMPANY-13270996

PATIENT
  Age: 61 Year
  Sex: Male
  Weight: 56 kg

DRUGS (11)
  1. CETUXIMAB [Suspect]
     Indication: COLORECTAL CANCER METASTATIC
     Dosage: THERAPY START DATE 07-DEC-05 (666MG). 416 MG 14-DEC-05 TO 18-JAN-06. INTERRUPTED.
     Route: 042
     Dates: start: 20060118, end: 20060118
  2. IRINOTECAN HCL [Suspect]
     Indication: COLORECTAL CANCER METASTATIC
     Dosage: THERAPY START DATE 07-DEC-05 (250 MG).
     Route: 042
     Dates: start: 20060118, end: 20060118
  3. GASTER D [Concomitant]
     Indication: GASTRITIS
     Route: 048
  4. MOBIC [Concomitant]
     Indication: GASTRITIS
     Route: 048
     Dates: end: 20060131
  5. NAUZELIN [Concomitant]
     Indication: NAUSEA
     Route: 048
  6. MEDICON [Concomitant]
     Indication: COUGH
     Route: 048
     Dates: end: 20060201
  7. MUCOSOLVAN [Concomitant]
     Indication: PRODUCTIVE COUGH
     Route: 048
  8. URSO [Concomitant]
     Indication: HEPATIC FUNCTION ABNORMAL
     Route: 048
  9. BETAMETHASONE [Concomitant]
     Indication: PREMEDICATION
     Route: 048
     Dates: start: 20051207
  10. KYTRIL [Concomitant]
     Indication: PREMEDICATION
     Route: 042
     Dates: start: 20051207
  11. DECADRON PHOSPHATE [Concomitant]
     Indication: PREMEDICATION
     Route: 042
     Dates: start: 20051207

REACTIONS (2)
  - HEPATIC FUNCTION ABNORMAL [None]
  - MALAISE [None]
